FAERS Safety Report 6271144-7 (Version None)
Quarter: 2009Q3

REPORT INFORMATION
  Report Type: 
  Country: None (occurrence: None)
  Receive Date: 20090716
  Receipt Date: 20090707
  Transmission Date: 20100115
  Serious: Yes (Other)
  Sender: FDA-Public Use
  Company Number: JP-BAXTER-2009BH011450

PATIENT
  Age: 83 Year
  Sex: Male
  Weight: 53 kg

DRUGS (1)
  1. SORBITOL 3% IN PLASTIC CONTAINER [Suspect]
     Indication: TRANSURETHRAL BLADDER RESECTION
     Route: 066
     Dates: start: 20090706, end: 20090706

REACTIONS (3)
  - HYPERGLYCAEMIA [None]
  - HYPERLACTACIDAEMIA [None]
  - HYPONATRAEMIA [None]
